FAERS Safety Report 8396914-0 (Version None)
Quarter: 2012Q2

REPORT INFORMATION
  Report Type: 
  Country: None (occurrence: None)
  Receive Date: 20120530
  Receipt Date: 20120521
  Transmission Date: 20120825
  Serious: Yes (Other)
  Sender: FDA-Public Use
  Company Number: US-ABBOTT-12P-163-0938282-00

PATIENT
  Age: 27 Year
  Sex: Female

DRUGS (18)
  1. OMEPRAZOLE [Concomitant]
     Indication: PRODUCT USED FOR UNKNOWN INDICATION
     Dosage: DELAYED RELEASE
  2. VITAMIN D [Concomitant]
     Indication: PRODUCT USED FOR UNKNOWN INDICATION
     Route: 048
  3. HUMIRA [Suspect]
     Indication: COLITIS ULCERATIVE
     Dosage: LOADING DOSE
     Dates: start: 20120329, end: 20120329
  4. PROVENTIL-HFA [Concomitant]
     Indication: WHEEZING
     Dosage: 2 PUFFS Q6 HR PRN
  5. CYPROHEPTADINE HCL [Concomitant]
     Indication: PRODUCT USED FOR UNKNOWN INDICATION
     Dosage: 1 1/2 TABS AT HS
  6. VITAMIN B-12 [Concomitant]
     Indication: PRODUCT USED FOR UNKNOWN INDICATION
     Route: 048
  7. HUMIRA [Suspect]
     Dosage: LOADING DOSE
     Dates: start: 20120412, end: 20120412
  8. SULFASALAZINE [Concomitant]
     Indication: PRODUCT USED FOR UNKNOWN INDICATION
     Route: 048
  9. KLONOPIN [Concomitant]
     Indication: PRODUCT USED FOR UNKNOWN INDICATION
  10. ALLEGRA [Concomitant]
     Indication: SEASONAL ALLERGY
  11. EFFEXOR [Concomitant]
     Indication: DEPRESSION
  12. FLEXERIL [Concomitant]
     Indication: PRODUCT USED FOR UNKNOWN INDICATION
     Dosage: 1 TAB UP TO THREE TIMES DAILY
  13. HUMIRA [Suspect]
  14. FOLIC ACID [Concomitant]
     Indication: PRODUCT USED FOR UNKNOWN INDICATION
  15. IMITREX [Concomitant]
     Indication: MIGRAINE
     Dosage: 1 TAB (MAY REPEAT EVERY 2 HOURS AS NEEDED; NOT TO EXCEED 200 MG DAILY
  16. ACETAMINOPHEN [Concomitant]
     Indication: ABDOMINAL PAIN
     Dosage: 1 TAB Q4HR PRN
  17. FLONASE [Concomitant]
     Indication: PRODUCT USED FOR UNKNOWN INDICATION
     Dosage: 2 SPRAYS EACH NOSTRIL DAILY
  18. BENTYL [Concomitant]
     Indication: PRODUCT USED FOR UNKNOWN INDICATION

REACTIONS (9)
  - CONSTIPATION [None]
  - ASTHENIA [None]
  - FAECES HARD [None]
  - RECTAL HAEMORRHAGE [None]
  - RECTAL DISCHARGE [None]
  - MUSCLE SPASMS [None]
  - BLOOD COUNT ABNORMAL [None]
  - INCORRECT PRODUCT STORAGE [None]
  - PAIN [None]
